FAERS Safety Report 10057470 (Version 2)
Quarter: 2014Q2

REPORT INFORMATION
  Report Type: Spontaneous
  Country: US (occurrence: US)
  Receive Date: 20140403
  Receipt Date: 20140403
  Transmission Date: 20141212
  Serious: Yes (Hospitalization, Other)
  Sender: FDA-Public Use
  Company Number: US-RB-064652-14

PATIENT
  Age: 0 None
  Sex: Male

DRUGS (4)
  1. GENERIC BUPRENORPHINE [Suspect]
     Indication: PRODUCT USED FOR UNKNOWN INDICATION
     Route: 064
     Dates: start: 2013, end: 20140127
  2. GENERIC BUPRENORPHINE [Suspect]
     Route: 063
     Dates: start: 20140128
  3. KLONOPIN [Concomitant]
     Indication: ANXIETY
     Dosage: UNKNOWN UNIT DOSE STRENGTH
     Route: 064
     Dates: start: 2013, end: 20140127
  4. KLONOPIN [Concomitant]
     Dosage: UNKNOWN UNIT DOSE STRENGTH
     Route: 063
     Dates: start: 20140128

REACTIONS (4)
  - Foetal exposure during pregnancy [Recovered/Resolved]
  - Neonatal aspiration [Recovered/Resolved]
  - Drug withdrawal syndrome neonatal [Recovered/Resolved]
  - Exposure during breast feeding [Not Recovered/Not Resolved]
